FAERS Safety Report 9163747 (Version 1)
Quarter: 2013Q1

REPORT INFORMATION
  Report Type: Spontaneous
  Country: US (occurrence: US)
  Receive Date: 20130314
  Receipt Date: 20130314
  Transmission Date: 20140127
  Serious: Yes (Hospitalization, Other)
  Sender: FDA-Public Use
  Company Number: US-MUTUAL PHARMACEUTICAL COMPANY, INC.-BCTM20130023

PATIENT
  Age: 67 Year
  Sex: Female

DRUGS (68)
  1. BACTRIM DS [Suspect]
     Indication: PRODUCT USED FOR UNKNOWN INDICATION
     Route: 048
     Dates: start: 20071005, end: 20071012
  2. BACTRIM DS [Suspect]
     Indication: INFECTION
     Route: 048
     Dates: start: 20080908, end: 20080915
  3. BACTRIM DS [Suspect]
     Route: 048
     Dates: start: 20081020, end: 20081030
  4. BACTRIM DS [Suspect]
     Route: 048
     Dates: start: 20091209, end: 20091214
  5. BACTRIM DS [Suspect]
     Route: 048
     Dates: start: 20121119, end: 20121124
  6. CELEBREX [Suspect]
     Indication: OSTEOARTHRITIS
     Route: 048
     Dates: start: 20050517, end: 20120921
  7. PAXIL 40 MG TABS [Concomitant]
     Indication: PRODUCT USED FOR UNKNOWN INDICATION
     Route: 048
     Dates: start: 20050504, end: 20090911
  8. INFLUENZA VACCINE [Concomitant]
     Indication: INFLUENZA IMMUNISATION
     Route: 065
     Dates: start: 20081020, end: 20081020
  9. ASPIRIN 81 MG EC TAB [Concomitant]
     Indication: ANTICOAGULANT THERAPY
     Route: 048
     Dates: start: 20120809, end: 20120915
  10. ASPIRIN 81 MG EC TAB [Concomitant]
     Indication: CARDIOVASCULAR EVENT PROPHYLAXIS
  11. METACMUCIL SMOOTH TEXTURE 56.6% POWDER [Concomitant]
     Indication: PRODUCT USED FOR UNKNOWN INDICATION
     Route: 048
     Dates: start: 20120921
  12. NASONEX SUS 50 MCG/AC [Concomitant]
     Indication: PRODUCT USED FOR UNKNOWN INDICATION
     Route: 065
     Dates: start: 20080825, end: 20090911
  13. AVAPRO TAB 300 MG [Concomitant]
     Indication: BLOOD PRESSURE ABNORMAL
     Route: 048
     Dates: start: 20110128
  14. AVAPRO TAB 300 MG [Concomitant]
     Indication: CARDIOVASCULAR EVENT PROPHYLAXIS
  15. PHENERGAN TABS 12.5 MG [Concomitant]
     Indication: NAUSEA
     Route: 048
     Dates: start: 20070412, end: 20071005
  16. DIFLUCAN TAB 150 MG [Concomitant]
     Indication: FUNGAL INFECTION
     Route: 048
     Dates: start: 20071005, end: 20071006
  17. CIPRO 500 MG [Concomitant]
     Indication: PRODUCT USED FOR UNKNOWN INDICATION
     Route: 048
     Dates: start: 20080912, end: 20080917
  18. ACTONEL 150 MG TABS [Concomitant]
     Indication: PRODUCT USED FOR UNKNOWN INDICATION
     Dates: start: 20090508, end: 20110128
  19. PHENERGAN TABS 25 MG [Concomitant]
     Indication: NAUSEA
     Route: 048
     Dates: start: 20090916
  20. PHENERGAN TABS 25 MG [Concomitant]
     Route: 048
     Dates: start: 20100219
  21. PHENERGAN TABS 25 MG [Concomitant]
     Route: 048
     Dates: start: 20100719
  22. PHENERGAN TABS 25 MG [Concomitant]
     Route: 048
     Dates: start: 20101230
  23. PHENERGAN TABS 25 MG [Concomitant]
     Route: 048
     Dates: start: 20110630
  24. PHENERGAN TABS 25 MG [Concomitant]
     Route: 048
     Dates: start: 20110927
  25. PHENERGAN TABS 25 MG [Concomitant]
     Route: 048
     Dates: start: 20121001
  26. HYDROCHLOROT TAB 25 MG [Concomitant]
     Indication: BLOOD PRESSURE ABNORMAL
     Route: 048
     Dates: start: 20120508
  27. HYDROCHLOROT TAB 25 MG [Concomitant]
     Indication: SWELLING
     Route: 048
     Dates: start: 20130111
  28. XOPENEX HFA 45 MCG/ACT AERO [Concomitant]
     Indication: COUGH
     Dates: start: 20120110
  29. XOPENEX HFA 45 MCG/ACT AERO [Concomitant]
     Indication: WHEEZING
  30. XOPENEX HFA 45 MCG/ACT AERO [Concomitant]
     Indication: CHEST DISCOMFORT
  31. CITRUCEL 500 MG TABS [Concomitant]
     Indication: PRODUCT USED FOR UNKNOWN INDICATION
     Route: 048
     Dates: start: 20120921
  32. CITRUCEL 500 MG TABS [Concomitant]
     Route: 048
     Dates: start: 20121001
  33. COLACE 100 MG CAPSULES [Concomitant]
     Indication: PRODUCT USED FOR UNKNOWN INDICATION
     Route: 048
     Dates: start: 20121001
  34. MIRALAX POWDER [Concomitant]
     Indication: PRODUCT USED FOR UNKNOWN INDICATION
     Route: 048
     Dates: start: 20121001
  35. FERROUS SULFATE TAB 325 MG EC [Concomitant]
     Indication: PRODUCT USED FOR UNKNOWN INDICATION
     Route: 048
     Dates: start: 20121001
  36. VITAMIN C 250 MG TABS [Concomitant]
     Indication: DRUG THERAPY ENHANCEMENT
     Route: 048
     Dates: start: 20121001
  37. SYNTHROID TAB [Concomitant]
     Indication: HORMONE REPLACEMENT THERAPY
     Route: 048
     Dates: start: 19970704
  38. SYNTHROID TAB [Concomitant]
     Dates: start: 20001213
  39. SYNTHROID TAB [Concomitant]
     Route: 048
     Dates: start: 20051202
  40. CALCIUM 600 MG TAB -D [Concomitant]
     Indication: PRODUCT USED FOR UNKNOWN INDICATION
     Route: 048
     Dates: start: 20040916
  41. ADVAIR DISKUS 500-50 MCG/DOSE [Concomitant]
     Indication: PRODUCT USED FOR UNKNOWN INDICATION
     Route: 065
     Dates: start: 20011218
  42. ADVAIR DISKUS 500-50 MCG/DOSE [Concomitant]
     Route: 065
     Dates: start: 20110328
  43. ADVAIR HFA 230-21MCG/ACT [Concomitant]
     Indication: PRODUCT USED FOR UNKNOWN INDICATION
     Route: 065
     Dates: start: 20080308
  44. TRAZODONE HCL 100 MG TAB [Concomitant]
     Indication: PRODUCT USED FOR UNKNOWN INDICATION
     Route: 048
     Dates: start: 20010913
  45. ZYRTEC TAB 100 MG [Concomitant]
     Indication: ALLERGY PROPHYLAXIS
     Route: 048
     Dates: start: 20040916
  46. FOLIC ACID TAB 1MG [Concomitant]
     Indication: PRODUCT USED FOR UNKNOWN INDICATION
     Route: 048
     Dates: start: 20040224, end: 20071001
  47. ACIPHEX 20 MG TBEC [Concomitant]
     Indication: PRODUCT USED FOR UNKNOWN INDICATION
     Route: 048
     Dates: start: 20031125
  48. COMBIVENT AER [Concomitant]
     Indication: PRODUCT USED FOR UNKNOWN INDICATION
     Route: 065
     Dates: start: 20040205, end: 20120110
  49. AVALIDE 300-25 MG [Concomitant]
     Indication: BLOOD PRESSURE ABNORMAL
     Route: 048
     Dates: start: 20090602, end: 20110128
  50. AVALIDE 300-25 MG [Concomitant]
     Indication: CARDIOVASCULAR EVENT PROPHYLAXIS
  51. CENTRUM SILVER TABS [Concomitant]
     Indication: PRODUCT USED FOR UNKNOWN INDICATION
     Route: 048
     Dates: start: 20050517
  52. CENTRUM SILVER TABS [Concomitant]
     Route: 048
     Dates: start: 20070404
  53. HYDROCODONE-APAP TABS 5-500 MG [Concomitant]
     Indication: PAIN
     Route: 048
     Dates: start: 20050517
  54. PRAVACHOL 20 MG TABS [Concomitant]
     Indication: BLOOD CHOLESTEROL ABNORMAL
     Route: 048
     Dates: start: 20070529
  55. VITAMIN C 500 MG TR [Concomitant]
  56. VITAMIN C 500 MG TR [Concomitant]
     Indication: DRUG THERAPY ENHANCEMENT
     Route: 048
     Dates: start: 20070404, end: 20120809
  57. COLACE CAP 100 MG [Concomitant]
     Indication: CONSTIPATION PROPHYLAXIS
     Route: 048
     Dates: start: 20070404, end: 20070305
  58. PHILLIPS MILK OF MAGNESIA 311 MG CHEW [Concomitant]
     Indication: CONSTIPATION
     Route: 048
     Dates: start: 20070404, end: 20080305
  59. BONIVA 150 MG TABS [Concomitant]
     Indication: PRODUCT USED FOR UNKNOWN INDICATION
     Route: 048
     Dates: start: 20080519, end: 20090508
  60. XOPENEX 1.5 MG/3ML NEB SOL [Concomitant]
     Indication: ASTHMA
     Route: 065
     Dates: start: 20090121, end: 20110128
  61. HYDROCODONE-GUAIFENESIN 5-100 MG/5 ML SYRP [Concomitant]
     Indication: COUGH
     Route: 048
     Dates: start: 20080522, end: 20090122
  62. PROMETHAZINE HCL 25 MG TAB [Concomitant]
     Indication: NAUSEA
     Route: 048
     Dates: start: 20110927
  63. NORVASC 5 MG TABS [Concomitant]
     Indication: PRODUCT USED FOR UNKNOWN INDICATION
     Route: 048
     Dates: start: 20110314
  64. VESICARE 5 MG TABS [Concomitant]
     Indication: PRODUCT USED FOR UNKNOWN INDICATION
     Route: 048
     Dates: start: 20110210
  65. CYCLOBENZAPRINE HCL 10 MG TABS [Concomitant]
     Indication: MUSCLE SPASMS
     Route: 048
     Dates: start: 20110304
  66. ONDANSETRON HCL 4 MG TABS [Concomitant]
     Indication: NAUSEA
     Route: 048
     Dates: start: 20120110
  67. ONDANSETRON HCL 4 MG TABS [Concomitant]
     Indication: WHEEZING
  68. ONDANSETRON HCL 4 MG TABS [Concomitant]
     Indication: CHEST DISCOMFORT

REACTIONS (32)
  - Gastrointestinal haemorrhage [Recovered/Resolved]
  - Pleural effusion [Recovered/Resolved]
  - Pulmonary hypertension [Unknown]
  - Anaemia [Unknown]
  - Gastritis [Unknown]
  - Gastrointestinal angiodysplasia [Unknown]
  - Drug ineffective [None]
  - Haematuria [Unknown]
  - Sinusitis [Unknown]
  - Muscle spasms [Unknown]
  - Intervertebral disc degeneration [Unknown]
  - Oedema peripheral [Unknown]
  - Lymphadenopathy [Unknown]
  - Libido decreased [Unknown]
  - Chest pain [Recovered/Resolved]
  - Dizziness [Recovered/Resolved]
  - Cystitis [Unknown]
  - Gastroenteritis [Recovered/Resolved]
  - Oesophageal candidiasis [Recovered/Resolved]
  - Intertrigo candida [Unknown]
  - Hypokalaemia [Recovered/Resolved]
  - Neck pain [Recovered/Resolved]
  - Musculoskeletal pain [Unknown]
  - Oral candidiasis [Unknown]
  - Migraine [Recovered/Resolved]
  - Speech disorder [Unknown]
  - Constipation [Unknown]
  - Nausea [Recovered/Resolved]
  - Abdominal pain [Unknown]
  - Myalgia [Unknown]
  - Cough [Unknown]
  - Pyrexia [Recovered/Resolved]
